FAERS Safety Report 5551202-2 (Version None)
Quarter: 2007Q4

REPORT INFORMATION
  Report Type: 
  Country: None (occurrence: None)
  Receive Date: 20071212
  Receipt Date: 20071210
  Transmission Date: 20080405
  Serious: Yes (Other)
  Sender: FDA-Public Use
  Company Number: GB-WYE-G00755507

PATIENT

DRUGS (1)
  1. VENLAFAXIINE HCL [Suspect]
     Dosage: 225MG FREQUENCY UNKNOWN

REACTIONS (3)
  - DRUG WITHDRAWAL SYNDROME [None]
  - DYSTONIA [None]
  - VERTIGO [None]
